FAERS Safety Report 4663323-7 (Version None)
Quarter: 2005Q2

REPORT INFORMATION
  Report Type: 
  Country: None (occurrence: None)
  Receive Date: 20050517
  Receipt Date: 20050510
  Transmission Date: 20051028
  Serious: Yes (Hospitalization)
  Sender: FDA-Public Use
  Company Number: US-BRISTOL-MYERS SQUIBB COMPANY-12963435

PATIENT
  Age: 74 Year
  Sex: Female
  Weight: 56 kg

DRUGS (7)
  1. CETUXIMAB [Suspect]
     Indication: NON-SMALL CELL LUNG CANCER
     Route: 042
     Dates: start: 20050428, end: 20050428
  2. CARBOPLATIN [Suspect]
     Indication: NON-SMALL CELL LUNG CANCER
     Dosage: 0 MG ADMIN. THIS COURSE/4TH FINAL CYCLE GIVEN ON WEEK 11/THIS PORTION PROTOCOL TREATMENT COMPLETED.
     Route: 042
     Dates: start: 20050317, end: 20050317
  3. PACLITAXEL [Suspect]
     Indication: NON-SMALL CELL LUNG CANCER
     Dosage: 0 MG ADMIN. THIS COURSE/4TH AND FINAL DOSE GIVEN WEEK 11/THIS PORTION PROTOCOL TREATMENT COMPLETED.
     Route: 042
     Dates: start: 20050317, end: 20050317
  4. COUMADIN [Suspect]
  5. COZAAR [Suspect]
  6. NORVASC [Suspect]
  7. AMIODARONE HCL [Concomitant]

REACTIONS (10)
  - BLOOD MAGNESIUM DECREASED [None]
  - BLOOD URINE PRESENT [None]
  - DROOLING [None]
  - FACIAL PALSY [None]
  - FAECAL OCCULT BLOOD POSITIVE [None]
  - HEART RATE INCREASED [None]
  - HYPOTENSION [None]
  - INTERNATIONAL NORMALISED RATIO INCREASED [None]
  - LOSS OF CONSCIOUSNESS [None]
  - SYNCOPE [None]
